FAERS Safety Report 23548236 (Version 2)
Quarter: 2024Q1

REPORT INFORMATION
  Report Type: Spontaneous
  Country: DE (occurrence: DE)
  Receive Date: 20240221
  Receipt Date: 20240314
  Transmission Date: 20240410
  Serious: Yes (Hospitalization, Other)
  Sender: FDA-Public Use
  Company Number: DE-DCGMA-24202832

PATIENT
  Age: 27 Year
  Sex: Male
  Weight: 67.4 kg

DRUGS (10)
  1. MEKINIST [Suspect]
     Active Substance: TRAMETINIB DIMETHYL SULFOXIDE
     Indication: Astrocytoma
     Dosage: 2 MG, QD
     Route: 065
     Dates: start: 20220221, end: 202207
  2. MEKINIST [Suspect]
     Active Substance: TRAMETINIB DIMETHYL SULFOXIDE
     Dosage: 2 MG, QD
     Route: 065
     Dates: start: 20230121
  3. PANTOPRAZOLE [Concomitant]
     Active Substance: PANTOPRAZOLE
     Indication: Product used for unknown indication
     Dosage: 1 DOSAGE FORM, QD (1-0-0-0)
     Route: 065
  4. POTASSIUM CHLORIDE [Concomitant]
     Active Substance: POTASSIUM CHLORIDE
     Indication: Product used for unknown indication
     Dosage: 1 DOSAGE FORM, TID (1-1-1-0) SUSTAINED-RELEASE
     Route: 065
  5. LEVOTHYROXINE [Concomitant]
     Active Substance: LEVOTHYROXINE\LEVOTHYROXINE SODIUM
     Indication: Product used for unknown indication
     Dosage: 1 DOSAGE FORM, QD (1-0-0-0)
     Route: 065
  6. LACOSAMIDE [Concomitant]
     Active Substance: LACOSAMIDE
     Indication: Product used for unknown indication
     Dosage: 1 DOSAGE FORM, BID (1-0-1-0)
     Route: 065
  7. BRIVARACETAM [Concomitant]
     Active Substance: BRIVARACETAM
     Indication: Product used for unknown indication
     Dosage: 1 DOSAGE FORM, BID (1-0-1-0)
     Route: 065
  8. TINZAPARIN [Concomitant]
     Active Substance: TINZAPARIN
     Indication: Product used for unknown indication
     Dosage: 1 DOSAGE FORM, QD (0-0-1-0)
     Route: 065
  9. TESTOSTERONE [Concomitant]
     Active Substance: TESTOSTERONE
     Indication: Product used for unknown indication
     Dosage: 1 DOSAGE FORM, QD (1-0-0-0)
     Route: 065
  10. LACTULOSE [Concomitant]
     Active Substance: LACTULOSE
     Indication: Product used for unknown indication
     Dosage: 45 ML, PRN (MAXIMUM OF 45 ML/DAY)
     Route: 065

REACTIONS (36)
  - Cerebral aspergillosis [Not Recovered/Not Resolved]
  - Encephalitis fungal [Not Recovered/Not Resolved]
  - Brain abscess [Not Recovered/Not Resolved]
  - Hyponatraemia [Recovered/Resolved]
  - Hypernatraemia [Recovered/Resolved]
  - Depressed level of consciousness [Unknown]
  - General physical health deterioration [Unknown]
  - Wound infection [Unknown]
  - Auricular swelling [Recovered/Resolved]
  - Shunt infection [Unknown]
  - Anaemia [Unknown]
  - Cerebrospinal fluid circulation disorder [Recovering/Resolving]
  - Neurological examination abnormal [Not Recovered/Not Resolved]
  - CNS ventriculitis [Unknown]
  - Astrocytoma [Recovering/Resolving]
  - Malignant neoplasm progression [Recovering/Resolving]
  - Generalised tonic-clonic seizure [Unknown]
  - Haematochezia [Unknown]
  - Decreased immune responsiveness [Unknown]
  - Impaired healing [Not Recovered/Not Resolved]
  - Ventriculo-peritoneal shunt [Unknown]
  - Infection [Unknown]
  - Ventricular drainage [Unknown]
  - Obesity [Unknown]
  - Cerebral ventricle collapse [Recovering/Resolving]
  - Ventricular dysfunction [Recovering/Resolving]
  - Ventriculo-cardiac shunt [Unknown]
  - Device dislocation [Unknown]
  - Pleocytosis [Unknown]
  - Fluid retention [Unknown]
  - Mass [Unknown]
  - Nodule [Not Recovered/Not Resolved]
  - Central nervous system lesion [Not Recovered/Not Resolved]
  - Hypopituitarism [Not Recovered/Not Resolved]
  - Off label use [Not Recovered/Not Resolved]
  - Off label use [Recovered/Resolved]

NARRATIVE: CASE EVENT DATE: 20220221
